FAERS Safety Report 8422361-9 (Version None)
Quarter: 2012Q2

REPORT INFORMATION
  Report Type: 
  Country: None (occurrence: None)
  Receive Date: 20120323
  Receipt Date: 20110927
  Transmission Date: 20120825
  Serious: Yes (Other)
  Sender: FDA-Public Use
  Company Number: 163-21880-11080809

PATIENT
  Age: 78 Year
  Sex: Male
  Weight: 96.2 kg

DRUGS (7)
  1. DECADRON [Concomitant]
  2. COUMADIN [Concomitant]
  3. REVLIMID [Suspect]
     Indication: MULTIPLE MYELOMA
     Dosage: 25 MG, 1 IN 1 D, PO ; 10 MG, 21 OUT OF 28 DAYS, PO
     Route: 048
     Dates: start: 20110609, end: 20110701
  4. REVLIMID [Suspect]
     Indication: MULTIPLE MYELOMA
     Dosage: 25 MG, 1 IN 1 D, PO ; 10 MG, 21 OUT OF 28 DAYS, PO
     Route: 048
     Dates: start: 20110801
  5. PAXIL [Concomitant]
  6. ZOMETA [Concomitant]
  7. CALCIUM CARBONATE [Concomitant]

REACTIONS (3)
  - IMMUNOSUPPRESSION [None]
  - NEUTROPHIL COUNT DECREASED [None]
  - FULL BLOOD COUNT DECREASED [None]
